FAERS Safety Report 9765400 (Version 1)
Quarter: 2013Q4

REPORT INFORMATION
  Report Type: Spontaneous
  Country: US (occurrence: US)
  Receive Date: 20131217
  Receipt Date: 20131217
  Transmission Date: 20140711
  Serious: No
  Sender: FDA-Public Use
  Company Number: US-BIOGENIDEC-2013BI110233

PATIENT
  Age: 56 Year
  Sex: Female

DRUGS (11)
  1. TECFIDERA [Suspect]
     Indication: MULTIPLE SCLEROSIS
     Route: 048
     Dates: start: 201310, end: 201310
  2. AMPYRA [Concomitant]
  3. VESICARE [Concomitant]
  4. BACLOFEN [Concomitant]
  5. MIRAPEX [Concomitant]
  6. SYNTHROID [Concomitant]
  7. VITAMIN B [Concomitant]
  8. COQ-10 [Concomitant]
  9. VITAMIN D [Concomitant]
  10. PREMARIN [Concomitant]
  11. CALCIUM [Concomitant]

REACTIONS (4)
  - Pyrexia [Unknown]
  - Influenza like illness [Unknown]
  - Nausea [Unknown]
  - Abdominal discomfort [Unknown]
